FAERS Safety Report 11490141 (Version 1)
Quarter: 2015Q3

REPORT INFORMATION
  Report Type: Report from Study
  Country: BE (occurrence: BE)
  Receive Date: 20150910
  Receipt Date: 20150910
  Transmission Date: 20151125
  Serious: Yes (Life-Threatening, Hospitalization, Other)
  Sender: FDA-Public Use
  Company Number: PHHO2012BE013683

PATIENT
  Age: 53 Year
  Sex: Male
  Weight: 57 kg

DRUGS (9)
  1. TRAMADOL. [Concomitant]
     Active Substance: TRAMADOL
     Indication: HEADACHE
     Dosage: 50 MG, QD
     Route: 065
     Dates: start: 201209
  2. OMEPRAZOLE. [Concomitant]
     Active Substance: OMEPRAZOLE
  3. DOXORUBICIN [Concomitant]
     Active Substance: DOXORUBICIN
     Dosage: UNK
     Route: 065
     Dates: start: 201301
  4. ZOLPIDEM [Concomitant]
     Active Substance: ZOLPIDEM\ZOLPIDEM TARTRATE
     Indication: INSOMNIA
     Dosage: 10 MG, PRN
     Route: 065
     Dates: start: 201209
  5. DAFALGAN [Concomitant]
     Active Substance: ACETAMINOPHEN
     Indication: ABDOMINAL PAIN
     Dosage: 1000 MG, PRN
     Route: 065
     Dates: start: 20120502
  6. AFINITOR [Suspect]
     Active Substance: EVEROLIMUS
     Indication: PANCREATIC NEUROENDOCRINE TUMOUR
     Dosage: 10 MG, QD
     Route: 048
     Dates: start: 201108, end: 201206
  7. AFINITOR [Suspect]
     Active Substance: EVEROLIMUS
     Dosage: 10 MG, QD
     Route: 048
     Dates: start: 201304, end: 201311
  8. SOMATULINE//LANREOTIDE [Concomitant]
     Active Substance: LANREOTIDE ACETATE
     Indication: PANCREATIC NEUROENDOCRINE TUMOUR
     Dosage: 120 MG, QMO
     Route: 065
     Dates: start: 201304, end: 201311
  9. DOXORUBICIN [Concomitant]
     Active Substance: DOXORUBICIN
     Indication: PANCREATIC NEUROENDOCRINE TUMOUR
     Dosage: UNK
     Route: 065
     Dates: start: 201206, end: 201301

REACTIONS (5)
  - Pyrexia [Recovered/Resolved]
  - Headache [Not Recovered/Not Resolved]
  - Hypothyroidism [Unknown]
  - Fatigue [Unknown]
  - Pyrexia [Not Recovered/Not Resolved]

NARRATIVE: CASE EVENT DATE: 20120917
